FAERS Safety Report 7207473-X (Version None)
Quarter: 2011Q1

REPORT INFORMATION
  Report Type: 
  Country: None (occurrence: None)
  Receive Date: 20110103
  Receipt Date: 20101226
  Transmission Date: 20110831
  Serious: Yes (Death, Hospitalization)
  Sender: FDA-Public Use
  Company Number: JP-CEPHALON-2011000012

PATIENT
  Sex: Male

DRUGS (10)
  1. PREDONINE [Suspect]
     Route: 048
     Dates: start: 20101222, end: 20101225
  2. BACTRIM [Concomitant]
     Dates: start: 20101126
  3. MAGLAX [Concomitant]
     Dates: start: 20101126
  4. ZYLORIC [Concomitant]
     Dates: start: 20101104
  5. ZOVIRAX [Concomitant]
     Dates: start: 20101124
  6. NORVASC [Concomitant]
     Dates: start: 20101111
  7. TREANDA [Suspect]
     Indication: MULTIPLE MYELOMA
     Route: 041
     Dates: start: 20101124, end: 20101223
  8. GASTER D [Concomitant]
     Dates: start: 20101124
  9. LASIX [Concomitant]
     Dates: start: 20101214
  10. PREDONINE [Suspect]
     Indication: MULTIPLE MYELOMA
     Route: 048
     Dates: start: 20101124, end: 20101127

REACTIONS (2)
  - PNEUMONIA [None]
  - SEPTIC SHOCK [None]
